FAERS Safety Report 20589023 (Version 3)
Quarter: 2022Q2

REPORT INFORMATION
  Report Type: Report from Study
  Country: US (occurrence: None)
  Receive Date: 20220314
  Receipt Date: 20220526
  Transmission Date: 20220720
  Serious: Yes (Hospitalization, Other)
  Sender: FDA-Public Use
  Company Number: US-ROCHE-2995766

PATIENT
  Age: 51 Year
  Sex: Female
  Weight: 89.3 kg

DRUGS (5)
  1. ATEZOLIZUMAB [Suspect]
     Active Substance: ATEZOLIZUMAB
     Indication: B-cell lymphoma
     Route: 041
     Dates: start: 20210326
  2. ATEZOLIZUMAB [Suspect]
     Active Substance: ATEZOLIZUMAB
     Route: 042
     Dates: start: 20210312
  3. OXALIPLATIN [Suspect]
     Active Substance: OXALIPLATIN
     Indication: B-cell lymphoma
     Dosage: DATE OF MOST RECENT DOSE : 26/MAR/2021
     Route: 042
     Dates: start: 20210312
  4. GEMCITABINE HYDROCHLORIDE [Suspect]
     Active Substance: GEMCITABINE HYDROCHLORIDE
     Indication: B-cell lymphoma
     Dosage: MOST RECENT DOSE : 26/MAR/2021
     Route: 042
     Dates: start: 20210312
  5. RITUXIMAB [Suspect]
     Active Substance: RITUXIMAB
     Indication: B-cell lymphoma
     Dosage: DATE OF MOST RECENT DOSE : 26/MAR/2021
     Route: 041
     Dates: start: 20210312

REACTIONS (5)
  - Infusion related reaction [Recovered/Resolved]
  - Dermatitis [Recovering/Resolving]
  - Acute kidney injury [Unknown]
  - Dermatitis bullous [Unknown]
  - Anaemia [Recovered/Resolved]

NARRATIVE: CASE EVENT DATE: 20210326
